FAERS Safety Report 5518412-1 (Version None)
Quarter: 2007Q4

REPORT INFORMATION
  Report Type: 
  Country: None (occurrence: None)
  Receive Date: 20071113
  Receipt Date: 20071113
  Transmission Date: 20080405
  Serious: Yes (Hospitalization)
  Sender: FDA-Public Use
  Company Number: None

PATIENT
  Age: 60 Year
  Sex: Female

DRUGS (14)
  1. VIDAZA [Suspect]
     Indication: ACUTE MYELOID LEUKAEMIA
     Dosage: 160 MG DAILY SQ
     Route: 058
     Dates: start: 20070902, end: 20070909
  2. EFFEXOR XR [Concomitant]
  3. ISOSORBIDE MONONITRATE [Concomitant]
  4. LASIX [Concomitant]
  5. LISINOPRIL [Concomitant]
  6. SPIRONOLACTONE [Concomitant]
  7. ASPIRIN [Concomitant]
  8. NEURONTIN [Concomitant]
  9. TOPROL-XL [Concomitant]
  10. XANAX [Concomitant]
  11. VICODIN [Concomitant]
  12. HUMALOG [Concomitant]
  13. LANTUS [Concomitant]
  14. AMBIEN [Concomitant]

REACTIONS (3)
  - HEPATITIS [None]
  - PANCYTOPENIA [None]
  - RENAL FAILURE ACUTE [None]
